FAERS Safety Report 4538347-0 (Version None)
Quarter: 2004Q4

REPORT INFORMATION
  Report Type: 
  Country: None (occurrence: None)
  Receive Date: 20041217
  Receipt Date: 20041203
  Transmission Date: 20050328
  Serious: Yes (Hospitalization)
  Sender: FDA-Public Use
  Company Number: 2004-03897 (0)

PATIENT

DRUGS (1)
  1. IMMUCYST (BCG - IT (CONNAUGHT)), AVENTIS PASTEUR LTD., LOT NOT REP [Suspect]
     Indication: BLADDER CANCER
     Dosage: I.VES.
     Route: 043

REACTIONS (3)
  - GRANULOMA [None]
  - PROSTATITIS [None]
  - TUBERCULOSIS [None]
